FAERS Safety Report 9124934 (Version 1)
Quarter: 2013Q1

REPORT INFORMATION
  Report Type: Spontaneous
  Country: DE (occurrence: DE)
  Receive Date: 20130227
  Receipt Date: 20130227
  Transmission Date: 20140127
  Serious: Yes (Death, Congenital Anomaly, Other)
  Sender: FDA-Public Use
  Company Number: DE-PFIZER INC-2013067300

PATIENT
  Sex: Female
  Weight: 3.14 kg

DRUGS (2)
  1. VENLAFAXINE HYDROCHLORIDE [Suspect]
     Indication: DEPRESSION
     Dosage: 150 MG, UNK
     Route: 064
     Dates: start: 2008
  2. FOLIC ACID [Concomitant]
     Indication: PROPHYLAXIS OF NEURAL TUBE DEFECT
     Dosage: UNK
     Route: 064
     Dates: start: 20110823, end: 20120126

REACTIONS (5)
  - Coarctation of the aorta [Fatal]
  - Foetal death [Fatal]
  - Patent ductus arteriosus [Unknown]
  - Atrial septal defect [Unknown]
  - Cyanosis [Unknown]
